FAERS Safety Report 6349636-1 (Version None)
Quarter: 2009Q3

REPORT INFORMATION
  Report Type: 
  Country: None (occurrence: None)
  Receive Date: 20090911
  Receipt Date: 20090901
  Transmission Date: 20100115
  Serious: Yes (Other)
  Sender: FDA-Public Use
  Company Number: US-ABBOTT-09P-163-0596152-00

PATIENT
  Age: 43 Year
  Sex: Female

DRUGS (5)
  1. RITONAVIR [Suspect]
     Indication: HIV INFECTION
     Route: 048
  2. DIDANOSINE [Concomitant]
     Indication: HIV INFECTION
     Route: 048
  3. ENFUVIRTIDE [Concomitant]
     Indication: HIV INFECTION
     Route: 042
  4. FOSAMPRENAVIR CALCIUM [Concomitant]
     Indication: HIV INFECTION
     Route: 048
  5. RALTEGRAVIR POTASSIUM/PLACEBO [Concomitant]
     Indication: HIV INFECTION
     Route: 048

REACTIONS (1)
  - ABORTION INDUCED [None]
